FAERS Safety Report 21742208 (Version 1)
Quarter: 2022Q4

REPORT INFORMATION
  Report Type: Report from Study
  Country: US (occurrence: US)
  Receive Date: 20221216
  Receipt Date: 20221216
  Transmission Date: 20230112
  Serious: Yes (Hospitalization)
  Sender: FDA-Public Use
  Company Number: US-SEATTLE GENETICS-2022SGN11030

PATIENT
  Sex: Male

DRUGS (1)
  1. TUCATINIB [Suspect]
     Active Substance: TUCATINIB
     Indication: Product used for unknown indication
     Dosage: 150 MG
     Route: 065

REACTIONS (9)
  - Swelling face [Unknown]
  - Pharyngeal swelling [Unknown]
  - Cough [Unknown]
  - Asthenia [Unknown]
  - Pyrexia [Unknown]
  - Insomnia [Unknown]
  - Mental disorder [Unknown]
  - Decreased appetite [Unknown]
  - Cognitive disorder [Unknown]
